FAERS Safety Report 8581621-1 (Version None)
Quarter: 2012Q3

REPORT INFORMATION
  Report Type: 
  Country: None (occurrence: None)
  Receive Date: 20120809
  Receipt Date: 20120803
  Transmission Date: 20120928
  Serious: Yes (Hospitalization)
  Sender: FDA-Public Use
  Company Number: DE-AMGEN-DEUCT2011057828

PATIENT
  Age: 54 Year
  Sex: Female

DRUGS (11)
  1. EPIRUBICIN [Concomitant]
     Dosage: 98.5 MG, UNK
     Route: 042
     Dates: start: 20110517
  2. ENOXAPARIN SODIUM [Concomitant]
     Dosage: 1.6 UNK, UNK
     Dates: start: 20110516
  3. XELODA [Concomitant]
     Dosage: 650 MG/M2, UNK
     Route: 048
     Dates: start: 20110517
  4. PANITUMUMAB [Suspect]
     Indication: GASTROOESOPHAGEAL CANCER
     Dosage: 9 MG/KG, Q2WK
     Route: 042
     Dates: start: 20110516
  5. CISPLATIN [Concomitant]
     Dosage: 118.2 MG, UNK
     Route: 042
     Dates: start: 20110517
  6. DEXAMETHASONE [Concomitant]
     Dosage: UNK
     Dates: start: 20110516
  7. GRANISETRON HYDROCHLORIDE [Concomitant]
     Dosage: UNK
     Dates: start: 20110516
  8. PANTOPRAZOLE [Concomitant]
  9. FENISTIL [Concomitant]
     Dosage: UNK
     Dates: start: 20110516
  10. LANTIC [Concomitant]
     Dosage: UNK
     Dates: start: 20110516
  11. LASIX [Concomitant]
     Dosage: UNK
     Dates: start: 20110516

REACTIONS (1)
  - VENOUS OCCLUSION [None]
